FAERS Safety Report 21531491 (Version 1)
Quarter: 2022Q4

REPORT INFORMATION
  Report Type: Report from Study
  Country: US (occurrence: US)
  Receive Date: 20221031
  Receipt Date: 20221031
  Transmission Date: 20230113
  Serious: No
  Sender: FDA-Public Use
  Company Number: US-INCYTE CORPORATION-2022IN009381

PATIENT

DRUGS (1)
  1. JAKAFI [Suspect]
     Active Substance: RUXOLITINIB
     Indication: Alopecia areata
     Dosage: 20 MILLIGRAM, BID
     Route: 065

REACTIONS (4)
  - Product availability issue [Unknown]
  - Off label use [Unknown]
  - Alopecia [Unknown]
  - Drug effective for unapproved indication [Unknown]
